FAERS Safety Report 7608789-5 (Version None)
Quarter: 2011Q3

REPORT INFORMATION
  Report Type: 
  Country: None (occurrence: None)
  Receive Date: 20110713
  Receipt Date: 20110713
  Transmission Date: 20111222
  Serious: Yes (Other)
  Sender: FDA-Public Use
  Company Number: None

PATIENT
  Sex: Male
  Weight: 113.3993 kg

DRUGS (2)
  1. MOXIFLOXACIN [Suspect]
     Indication: BRONCHITIS
     Dosage: 1 PER DAY
     Dates: start: 20110501
  2. MOXIFLOXACIN [Suspect]
     Indication: SINUSITIS
     Dosage: 1 PER DAY
     Dates: start: 20110501

REACTIONS (3)
  - SKIN DISCOLOURATION [None]
  - MUSCLE SPASMS [None]
  - PAIN IN EXTREMITY [None]
